FAERS Safety Report 8337705 (Version 3)
Quarter: 2012Q4

REPORT INFORMATION
  Report Type: 
  Country: IT (occurrence: IT)
  Receive Date: 20120116
  Receipt Date: 20120914
  Transmission Date: 20130627
  Serious: Yes (Life-Threatening)
  Sender: FDA-Public Use
  Company Number: IT-BAYER-2012-004343

PATIENT
  Age: 80 Year
  Sex: Female

DRUGS (4)
  1. NEXAVAR [Suspect]
     Indication: RENAL CELL CARCINOMA
     Dosage: Daily dose 400 mg
     Route: 048
     Dates: start: 20081007, end: 20081014
  2. CARDIOASPIRIN [Suspect]
     Dosage: Daily dose 100 mg
     Route: 048
     Dates: start: 20070101, end: 20081104
  3. NEBILOX [Concomitant]
     Dosage: Daily dose 5 mg
     Route: 048
     Dates: start: 20070101, end: 20081104
  4. TRAMADOL [Concomitant]
     Dosage: UNK
     Route: 048
     Dates: start: 20070101, end: 20081104

REACTIONS (2)
  - Hypertension [Recovering/Resolving]
  - Abdominal pain [Recovering/Resolving]
